FAERS Safety Report 5518536-9 (Version None)
Quarter: 2007Q4

REPORT INFORMATION
  Report Type: 
  Country: None (occurrence: None)
  Receive Date: 20071115
  Receipt Date: 20071106
  Transmission Date: 20080405
  Serious: Yes (Other)
  Sender: FDA-Public Use
  Company Number: JP-PFIZER INC-2007086031

PATIENT
  Age: 45 Year
  Sex: Female

DRUGS (4)
  1. SOLANAX [Suspect]
     Route: 048
  2. ANTIDEPRESSANTS [Concomitant]
  3. HYPNOTICS AND SEDATIVES [Concomitant]
  4. ALL OTHER THERAPEUTIC PRODUCTS [Concomitant]

REACTIONS (2)
  - BRADYCARDIA [None]
  - LOSS OF CONSCIOUSNESS [None]
